FAERS Safety Report 21391476 (Version 1)
Quarter: 2022Q3

REPORT INFORMATION
  Report Type: Report from Study
  Country: EG (occurrence: EG)
  Receive Date: 20220929
  Receipt Date: 20220929
  Transmission Date: 20221027
  Serious: Yes (Other)
  Sender: FDA-Public Use
  Company Number: EG-NOVARTISPH-NVSC2022EG214547

PATIENT
  Age: 43 Year
  Sex: Male

DRUGS (5)
  1. HYRIMOZ [Suspect]
     Active Substance: ADALIMUMAB-ADAZ
     Indication: Hidradenitis
     Dosage: 80 MG, QW
     Route: 065
     Dates: start: 20220121
  2. HUMIRA [Concomitant]
     Active Substance: ADALIMUMAB
     Indication: Product used for unknown indication
     Dosage: UNK
     Route: 065
  3. CLINDAMYCIN [Concomitant]
     Active Substance: CLINDAMYCIN
     Indication: Hidradenitis
     Dosage: 1-2 OR 3 TABLET, QD (FROM 4 YEARS)
     Route: 065
  4. MOXIFLOXACIN [Concomitant]
     Active Substance: MOXIFLOXACIN
     Indication: Hidradenitis
     Dosage: 1-2 OR 3 TABLET, QD (FROM 4 YEARS)
     Route: 065
  5. INVANZ [Concomitant]
     Active Substance: ERTAPENEM SODIUM
     Indication: Hidradenitis
     Dosage: 1 SYRINGE QD, FROM MONTH BEFORE THE SURGERY
     Route: 065

REACTIONS (2)
  - Haemoglobin decreased [Recovered/Resolved]
  - Off label use [Not Recovered/Not Resolved]

NARRATIVE: CASE EVENT DATE: 20220724
